FAERS Safety Report 11528121 (Version 2)
Quarter: 2017Q1

REPORT INFORMATION
  Report Type: Report from Study
  Country: US (occurrence: US)
  Receive Date: 20150921
  Receipt Date: 20170222
  Transmission Date: 20170428
  Serious: No
  Sender: FDA-Public Use
  Company Number: PHEH2015US018087

PATIENT
  Sex: Female
  Weight: 62.13 kg

DRUGS (1)
  1. GILENYA [Suspect]
     Active Substance: FINGOLIMOD HYDROCHLORIDE
     Indication: MULTIPLE SCLEROSIS
     Dosage: 0.5 MG, QD
     Route: 048
     Dates: start: 20150428

REACTIONS (4)
  - Nervousness [Unknown]
  - Alopecia [Unknown]
  - Weight decreased [Unknown]
  - Memory impairment [Unknown]
